FAERS Safety Report 5846708-2 (Version None)
Quarter: 2008Q3

REPORT INFORMATION
  Report Type: 
  Country: None (occurrence: None)
  Receive Date: 20080815
  Receipt Date: 20080808
  Transmission Date: 20090109
  Serious: Yes (Other)
  Sender: FDA-Public Use
  Company Number: GB-AVENTIS-200814273EU

PATIENT
  Age: 44 Year
  Sex: Male

DRUGS (9)
  1. ENOXAPARIN SODIUM [Suspect]
     Route: 058
     Dates: start: 20080720
  2. ENOXAPARIN SODIUM [Suspect]
     Indication: PULMONARY EMBOLISM
     Route: 058
     Dates: start: 20080720
  3. DEMECLOCYCLINE HCL [Suspect]
     Indication: HYPONATRAEMIA
     Route: 048
     Dates: start: 20080715, end: 20080730
  4. DEXAMETHASONE TAB [Concomitant]
     Indication: INTRACRANIAL PRESSURE INCREASED
     Route: 058
  5. DEXAMETHASONE TAB [Concomitant]
     Route: 058
  6. LEVETIRACETAM [Concomitant]
     Route: 048
     Dates: start: 20080101
  7. LEVOTHYROXINE SODIUM [Concomitant]
     Indication: HYPOTHYROIDISM
     Route: 048
     Dates: start: 20080716
  8. OMEPRAZOLE [Concomitant]
     Route: 048
  9. TRAMADOL HCL [Concomitant]
     Indication: PAIN
     Route: 048

REACTIONS (2)
  - HEPATIC FAILURE [None]
  - THROMBOCYTOPENIA [None]
